FAERS Safety Report 10909567 (Version 1)
Quarter: 2015Q1

REPORT INFORMATION
  Report Type: Spontaneous
  Country: US (occurrence: US)
  Receive Date: 20150312
  Receipt Date: 20150312
  Transmission Date: 20150721
  Serious: No
  Sender: FDA-Public Use
  Company Number: US-SA-2014SA061029

PATIENT
  Age: 82 Year
  Sex: Female

DRUGS (4)
  1. NASACORT ALLERGY 24HR [Suspect]
     Active Substance: TRIAMCINOLONE ACETONIDE
     Indication: NASOPHARYNGITIS
     Dosage: DOSE: 2 SPRAYS/NOSTRIL.
     Route: 065
     Dates: start: 20140502, end: 20140503
  2. NASACORT ALLERGY 24HR [Suspect]
     Active Substance: TRIAMCINOLONE ACETONIDE
     Indication: HYPERSENSITIVITY
     Dosage: DOSE: 2 SPRAYS/NOSTRIL.
     Route: 065
     Dates: start: 20140502, end: 20140503
  3. TYLENOL [Concomitant]
     Active Substance: ACETAMINOPHEN
  4. OTHER ANTITUSSIVES AND EXPECTORANTS [Concomitant]

REACTIONS (2)
  - Tremor [Unknown]
  - Cold sweat [Unknown]
